FAERS Safety Report 23800333 (Version 1)
Quarter: 2024Q2

REPORT INFORMATION
  Report Type: Spontaneous
  Country: US (occurrence: US)
  Receive Date: 20240430
  Receipt Date: 20240430
  Transmission Date: 20240716
  Serious: Yes (Hospitalization, Other)
  Sender: FDA-Public Use
  Company Number: US-SANDOZ-SDZ2024US042824

PATIENT
  Age: 58 Year
  Sex: Female
  Weight: 98.9 kg

DRUGS (11)
  1. CEFDINIR [Suspect]
     Active Substance: CEFDINIR
     Indication: Empyema
     Dosage: 300 MG, BID (START DATE: 26-JAN-2024).
     Route: 065
  2. CEFPROZIL [Suspect]
     Active Substance: CEFPROZIL
     Indication: Empyema
     Dosage: UNK (START DATE: 22-JAN-2024).
     Route: 065
  3. RECORLEV [Suspect]
     Active Substance: LEVOKETOCONAZOLE
     Indication: Cushing^s syndrome
     Dosage: 150 MG
     Route: 065
     Dates: start: 20230126, end: 20231218
  4. CALCIUM CARBONATE [Concomitant]
     Active Substance: CALCIUM CARBONATE
     Indication: Product used for unknown indication
     Dosage: 500 MG
     Route: 065
  5. GABAPENTIN [Concomitant]
     Active Substance: GABAPENTIN
     Indication: Product used for unknown indication
     Dosage: 300 MG
     Route: 065
  6. HYZAAR [Concomitant]
     Active Substance: HYDROCHLOROTHIAZIDE\LOSARTAN POTASSIUM
     Indication: Product used for unknown indication
     Dosage: 50-12.5 MG
     Route: 065
     Dates: start: 202401
  7. LEVOTHYROXINE [Concomitant]
     Active Substance: LEVOTHYROXINE\LEVOTHYROXINE SODIUM
     Indication: Product used for unknown indication
     Dosage: 175 UG
     Route: 065
  8. SYMBICORT [Concomitant]
     Active Substance: BUDESONIDE\FORMOTEROL FUMARATE DIHYDRATE
     Indication: Product used for unknown indication
     Dosage: 160-4.5
     Route: 065
  9. VITAMIN B12 [Concomitant]
     Active Substance: CYANOCOBALAMIN
     Indication: Product used for unknown indication
     Dosage: 500 UNK
     Route: 065
  10. VITAMIN D [Concomitant]
     Active Substance: VITAMIN D NOS
     Indication: Product used for unknown indication
     Dosage: 1.25 MG
     Route: 065
  11. ZINCATE [Concomitant]
     Indication: Product used for unknown indication
     Dosage: 220 MG
     Route: 065

REACTIONS (22)
  - Anxiety [Unknown]
  - Adrenal mass [Unknown]
  - Gastritis [Unknown]
  - Joint swelling [Unknown]
  - Drug interaction [Unknown]
  - Hypokalaemia [Unknown]
  - Lung disorder [Unknown]
  - Infectious pleural effusion [Unknown]
  - Asthma [Unknown]
  - Arthralgia [Unknown]
  - Weight increased [Unknown]
  - Dental operation [Unknown]
  - Gastrooesophageal reflux disease [Unknown]
  - Thrombocytosis [Unknown]
  - Normocytic anaemia [Unknown]
  - Leukocytosis [Unknown]
  - Hyponatraemia [Unknown]
  - Hypoalbuminaemia [Unknown]
  - Asthenia [Unknown]
  - Diarrhoea [Unknown]
  - Nausea [Unknown]
  - Abdominal pain [Unknown]

NARRATIVE: CASE EVENT DATE: 20231201
